FAERS Safety Report 6066752-2 (Version None)
Quarter: 2009Q1

REPORT INFORMATION
  Report Type: 
  Country: None (occurrence: None)
  Receive Date: 20090205
  Receipt Date: 20090128
  Transmission Date: 20090719
  Serious: Yes (Death)
  Sender: FDA-Public Use
  Company Number: US-WATSON-2009-00646

PATIENT
  Age: 31 Year
  Sex: Female

DRUGS (4)
  1. LIDOCAINE HYDROCHLORIDE (WATSON LABORATORIES) [Suspect]
     Indication: DRUG USE FOR UNKNOWN INDICATION
     Dosage: UNKNOWN
     Dates: end: 20070101
  2. MIRTAZAPINE [Suspect]
     Indication: DRUG USE FOR UNKNOWN INDICATION
     Dosage: UNK
     Dates: end: 20070101
  3. METHAMPHETAMINE HYDROCHLORIDE [Suspect]
     Indication: DRUG USE FOR UNKNOWN INDICATION
  4. AMPHETAMINE AND DEXTROAMPHETAMINE SALTS [Suspect]
     Indication: DRUG USE FOR UNKNOWN INDICATION

REACTIONS (1)
  - CARDIO-RESPIRATORY ARREST [None]
